FAERS Safety Report 11404253 (Version 1)
Quarter: 2015Q3

REPORT INFORMATION
  Report Type: Spontaneous
  Country: US (occurrence: US)
  Receive Date: 20150821
  Receipt Date: 20150821
  Transmission Date: 20151125
  Serious: Yes (Death, Congenital Anomaly, Other)
  Sender: FDA-Public Use
  Company Number: US-GLAXOSMITHKLINE-US2015GSK118800

PATIENT
  Sex: Female

DRUGS (1)
  1. ZOFRAN [Suspect]
     Active Substance: ONDANSETRON HYDROCHLORIDE
     Indication: VOMITING IN PREGNANCY
     Dosage: UNK
     Route: 064
     Dates: start: 201212, end: 201307

REACTIONS (4)
  - Foetal exposure during pregnancy [Unknown]
  - Patent ductus arteriosus [Fatal]
  - Atrial septal defect [Fatal]
  - Cardiac murmur [Fatal]
